FAERS Safety Report 25469526 (Version 1)
Quarter: 2025Q2

REPORT INFORMATION
  Report Type: Spontaneous
  Country: US (occurrence: None)
  Receive Date: 20250623
  Receipt Date: 20250623
  Transmission Date: 20250716
  Serious: Yes (Life-Threatening, Hospitalization, Disabling)
  Sender: FDA-CTU
  Company Number: None

PATIENT
  Age: 55 Year
  Sex: Female
  Weight: 83.25 kg

DRUGS (13)
  1. MEGESTROL ACETATE [Suspect]
     Active Substance: MEGESTROL ACETATE
     Indication: Endometrial hyperplasia
     Dosage: 2 TABLET(S) TWICE A DAY ORAL ?
     Route: 048
     Dates: start: 20250205, end: 20250602
  2. MEGESTROL ACETATE [Suspect]
     Active Substance: MEGESTROL ACETATE
     Indication: Endometrial hyperplasia
     Dosage: 2 TABLET(S) TWICE A DAY ORAL
     Route: 048
     Dates: start: 20250205, end: 20250602
  3. LOVENOX [Suspect]
     Active Substance: ENOXAPARIN SODIUM
  4. ELIQUIS [Concomitant]
     Active Substance: APIXABAN
  5. TESTOSTERONE CYPIONATE [Concomitant]
     Active Substance: TESTOSTERONE CYPIONATE
  6. VITAMINS [Concomitant]
     Active Substance: VITAMINS
  7. PROBIOTICS NOS [Concomitant]
     Active Substance: PROBIOTICS NOS
  8. MELATONIN [Concomitant]
     Active Substance: MELATONIN
  9. MAGNESIUM [Concomitant]
     Active Substance: MAGNESIUM
  10. FISH OIL [Concomitant]
     Active Substance: FISH OIL
  11. CYANOCOBALAMIN\DEXPANTHENOL\NIACINAMIDE\PYRIDOXINE HYDROCHLORIDE\RIBOF [Concomitant]
     Active Substance: CYANOCOBALAMIN\DEXPANTHENOL\NIACINAMIDE\PYRIDOXINE HYDROCHLORIDE\RIBOFLAVIN 5^-PHOSPHATE SODIUM\THIA
  12. COLLAGEN [Concomitant]
     Active Substance: COLLAGEN
  13. JOINT SUPPORT SUPPLEMENT [Concomitant]
     Active Substance: CELLULOSE, MICROCRYSTALLINE\GINGER

REACTIONS (3)
  - Deep vein thrombosis [None]
  - Pulmonary embolism [None]
  - Haemorrhage [None]

NARRATIVE: CASE EVENT DATE: 20250601
